FAERS Safety Report 23776689 (Version 1)
Quarter: 2024Q2

REPORT INFORMATION
  Report Type: Spontaneous
  Country: ES (occurrence: None)
  Receive Date: 20240424
  Receipt Date: 20240424
  Transmission Date: 20240716
  Serious: Yes (Death, Life-Threatening, Hospitalization, Other)
  Sender: FDA-Public Use
  Company Number: ES-MLMSERVICE-20240416-PI028678-00218-1

PATIENT
  Age: 86 Year
  Sex: Male

DRUGS (1)
  1. METHOTREXATE [Suspect]
     Active Substance: METHOTREXATE
     Indication: Dermatitis atopic

REACTIONS (8)
  - Accidental overdose [Fatal]
  - Inappropriate schedule of product administration [Fatal]
  - Pancytopenia [Fatal]
  - Multiple organ dysfunction syndrome [Fatal]
  - Bone marrow failure [Unknown]
  - Acute kidney injury [Unknown]
  - Eczema impetiginous [Unknown]
  - Product use in unapproved indication [Unknown]
